FAERS Safety Report 4539491-4 (Version None)
Quarter: 2004Q4

REPORT INFORMATION
  Report Type: 
  Country: None (occurrence: None)
  Receive Date: 20041222
  Receipt Date: 20041209
  Transmission Date: 20050328
  Serious: Yes (Death, Life-Threatening, Hospitalization)
  Sender: FDA-Public Use
  Company Number: 2004-0007862

PATIENT
  Age: 54 Year
  Sex: Male
  Weight: 66 kg

DRUGS (7)
  1. VIREAD [Suspect]
     Indication: HIV INFECTION
     Dosage: 300 MG, 1 IN 1 D, ORAL
     Route: 048
     Dates: start: 20020903, end: 20021107
  2. LAMIVUDINE      (LAMIVUDINE) [Concomitant]
  3. LOPINAVIR W/RITONAVIR               (KALETRA) [Concomitant]
  4. IBUPROFEN [Concomitant]
  5. ACETYLCYSTEINE [Concomitant]
  6. ZOPLICONE (ZOPLICONE) [Concomitant]
  7. LEVOFLOXACIN [Concomitant]

REACTIONS (14)
  - ABDOMINAL PAIN [None]
  - ANURIA [None]
  - ASTHENIA [None]
  - BLADDER DISTENSION [None]
  - BLOOD LACTATE DEHYDROGENASE INCREASED [None]
  - BLOOD POTASSIUM INCREASED [None]
  - BLOOD URIC ACID INCREASED [None]
  - CONDITION AGGRAVATED [None]
  - HYPERURICAEMIA [None]
  - LEUKOCYTOSIS [None]
  - MULTI-ORGAN FAILURE [None]
  - MYALGIA [None]
  - PNEUMONIA [None]
  - RENAL FAILURE ACUTE [None]
